FAERS Safety Report 19662347 (Version 2)
Quarter: 2023Q1

REPORT INFORMATION
  Report Type: Spontaneous
  Country: GB (occurrence: GB)
  Receive Date: 20210805
  Receipt Date: 20230306
  Transmission Date: 20230418
  Serious: Yes (Disabling, Other)
  Sender: FDA-Public Use
  Company Number: None

PATIENT
  Age: 53 Year
  Sex: Male
  Weight: 106 kg

DRUGS (3)
  1. LOSARTAN POTASSIUM [Suspect]
     Active Substance: LOSARTAN POTASSIUM
     Indication: Ill-defined disorder
     Dosage: 100 MILLIGRAM
     Route: 048
     Dates: start: 20210715, end: 20210721
  2. LOSARTAN POTASSIUM [Suspect]
     Active Substance: LOSARTAN POTASSIUM
     Indication: Hypertension
  3. RAMIPRIL [Concomitant]
     Active Substance: RAMIPRIL
     Indication: Ill-defined disorder
     Dosage: 5 MILLIGRAM

REACTIONS (7)
  - Dyshidrotic eczema [Recovering/Resolving]
  - Back pain [Recovered/Resolved]
  - Rash [Recovering/Resolving]
  - Pruritus [Unknown]
  - Skin burning sensation [Recovering/Resolving]
  - Discomfort [Unknown]
  - Blister [Unknown]

NARRATIVE: CASE EVENT DATE: 20210717
